FAERS Safety Report 20058431 (Version 1)
Quarter: 2021Q4

REPORT INFORMATION
  Report Type: Spontaneous
  Country: CN (occurrence: CN)
  Receive Date: 20211111
  Receipt Date: 20211111
  Transmission Date: 20220303
  Serious: Yes (Other)
  Sender: FDA-Public Use
  Company Number: CN-PFIZER INC-202101484324

PATIENT
  Age: 44 Year
  Sex: Female
  Weight: 50 kg

DRUGS (3)
  1. CEFOBID [Suspect]
     Active Substance: CEFOPERAZONE
     Indication: Anti-infective therapy
     Dosage: 2 G, 2X/DAY
     Route: 041
     Dates: start: 20211005, end: 20211020
  2. TIAN PU LUO AN [Concomitant]
     Indication: Therapeutic procedure
     Dosage: 900000 IU, 1X/DAY(VIA PUMP INJECTION)
     Dates: start: 20211004, end: 20211006
  3. HERBALS [Concomitant]
     Active Substance: HERBALS
     Indication: Antiinflammatory therapy
     Dosage: 0.5 G, 1X/DAY
     Route: 042
     Dates: start: 20211005, end: 20211020

REACTIONS (3)
  - White blood cell count decreased [Recovering/Resolving]
  - Haemoglobin decreased [Recovering/Resolving]
  - Myelosuppression [Recovering/Resolving]

NARRATIVE: CASE EVENT DATE: 20211018
